FAERS Safety Report 22275369 (Version 1)
Quarter: 2023Q2

REPORT INFORMATION
  Report Type: Spontaneous
  Country: CA (occurrence: CA)
  Receive Date: 20230502
  Receipt Date: 20230502
  Transmission Date: 20230721
  Serious: Yes (Life-Threatening)
  Sender: FDA-Public Use
  Company Number: CA-FreseniusKabi-FK202305636

PATIENT

DRUGS (2)
  1. ROPIVACAINE HYDROCHLORIDE [Suspect]
     Active Substance: ROPIVACAINE HYDROCHLORIDE
     Indication: Product used for unknown indication
  2. VOLUVEN [Suspect]
     Active Substance: HYDROXYETHYL STARCH 130/0.4
     Indication: Product used for unknown indication

REACTIONS (1)
  - Product confusion [Unknown]
